FAERS Safety Report 16704418 (Version 1)
Quarter: 2019Q3

REPORT INFORMATION
  Report Type: Spontaneous
  Country: US (occurrence: US)
  Receive Date: 20190814
  Receipt Date: 20190814
  Transmission Date: 20191004
  Serious: No
  Sender: FDA-Public Use
  Company Number: US-SA-2019SA219677

PATIENT
  Age: 63 Year
  Sex: Female

DRUGS (1)
  1. LANTUS SOLOSTAR [Suspect]
     Active Substance: INSULIN GLARGINE
     Dosage: 60 U, QD (45 UNITS IN THE MORNING AND 15 UNITS AT NIGHT)

REACTIONS (2)
  - Inappropriate schedule of product administration [Unknown]
  - Device operational issue [Unknown]
